FAERS Safety Report 11138819 (Version 1)
Quarter: 2015Q2

REPORT INFORMATION
  Report Type: Report from Study
  Country: US (occurrence: US)
  Receive Date: 20150527
  Receipt Date: 20150527
  Transmission Date: 20150821
  Serious: Yes (Other)
  Sender: FDA-Public Use
  Company Number: US-AMGEN-USASL2015050714

PATIENT
  Age: 69 Year
  Sex: Male

DRUGS (1)
  1. KYPROLIS [Suspect]
     Active Substance: CARFILZOMIB
     Indication: PRODUCT USED FOR UNKNOWN INDICATION
     Dosage: UNK, UNK
     Route: 065
     Dates: start: 201410

REACTIONS (11)
  - Hip fracture [Unknown]
  - Fall [Unknown]
  - Asthenia [Unknown]
  - Agitation [Unknown]
  - Upper limb fracture [Unknown]
  - Sleep disorder [Unknown]
  - Blood pressure abnormal [Unknown]
  - Hallucination [Unknown]
  - Dementia Alzheimer^s type [Unknown]
  - Gait disturbance [Unknown]
  - Fatigue [Unknown]

NARRATIVE: CASE EVENT DATE: 201501
